FAERS Safety Report 12986703 (Version 2)
Quarter: 2016Q4

REPORT INFORMATION
  Report Type: Spontaneous
  Country: JP (occurrence: JP)
  Receive Date: 20161130
  Receipt Date: 20161208
  Transmission Date: 20170207
  Serious: Yes (Other)
  Sender: FDA-Public Use
  Company Number: JP-PFIZER INC-2016544285

PATIENT
  Age: 89 Year
  Sex: Female

DRUGS (9)
  1. RIZABEN [Suspect]
     Active Substance: TRANILAST
     Dosage: UNK
     Route: 047
  2. BISOPROLOL FUMARATE. [Suspect]
     Active Substance: BISOPROLOL FUMARATE
     Dosage: UNK
     Route: 048
  3. NIKORANMART [Suspect]
     Active Substance: NICORANDIL
     Dosage: UNK
     Route: 048
  4. FOLIAMIN [Suspect]
     Active Substance: FOLIC ACID
     Dosage: UNK
  5. TAKEPRON [Suspect]
     Active Substance: LANSOPRAZOLE
     Dosage: 15 MG, UNK
     Route: 048
  6. AMLODIPINE BESILATE [Suspect]
     Active Substance: AMLODIPINE BESYLATE
     Dosage: UNK
     Route: 048
  7. ACETYLSALICYLIC ACID [Suspect]
     Active Substance: ASPIRIN
     Dosage: UNK
     Route: 048
  8. METHYCOBAL [Suspect]
     Active Substance: METHYLCOBALAMIN
     Dosage: UNK
     Route: 048
  9. CERCINE [Suspect]
     Active Substance: DIAZEPAM
     Dosage: UNK

REACTIONS (2)
  - Ulcer haemorrhage [Recovered/Resolved]
  - Condition aggravated [Recovered/Resolved]
